FAERS Safety Report 18718155 (Version 1)
Quarter: 2021Q1

REPORT INFORMATION
  Report Type: Spontaneous
  Country: JP (occurrence: JP)
  Receive Date: 20210108
  Receipt Date: 20210108
  Transmission Date: 20210419
  Serious: Yes (Other)
  Sender: FDA-Public Use
  Company Number: JP-ROCHE-2745592

PATIENT
  Sex: Male

DRUGS (1)
  1. TECENTRIQ [Suspect]
     Active Substance: ATEZOLIZUMAB
     Indication: PRODUCT USED FOR UNKNOWN INDICATION
     Dosage: DOSAGE IS UNCERTAIN.
     Route: 041

REACTIONS (27)
  - Arrhythmia [Unknown]
  - Insomnia [Unknown]
  - Abdominal pain upper [Unknown]
  - Protein urine [Unknown]
  - Penile pain [Unknown]
  - Palpitations [Unknown]
  - Fatigue [Unknown]
  - Memory impairment [Unknown]
  - Diarrhoea [Unknown]
  - Pruritus [Unknown]
  - Dizziness [Unknown]
  - Abdominal distension [Unknown]
  - Sinusitis [Unknown]
  - Erection increased [Unknown]
  - Ejaculation disorder [Unknown]
  - Eye pain [Unknown]
  - Apathy [Unknown]
  - Nasal congestion [Unknown]
  - Myalgia [Unknown]
  - Headache [Unknown]
  - Rhinitis [Unknown]
  - Rash [Unknown]
  - Hot flush [Unknown]
  - Dyspepsia [Unknown]
  - Pharyngitis [Unknown]
  - Blood uric acid increased [Unknown]
  - Glucose urine present [Unknown]
